FAERS Safety Report 19980833 (Version 4)
Quarter: 2022Q1

REPORT INFORMATION
  Report Type: Spontaneous
  Country: US (occurrence: US)
  Receive Date: 20211021
  Receipt Date: 20220208
  Transmission Date: 20220423
  Serious: Yes (Other)
  Sender: FDA-Public Use
  Company Number: US-GSKCCFUS-CASE-01195101_AE-69898

PATIENT
  Age: 50 Year
  Sex: Female

DRUGS (2)
  1. BENLYSTA [Suspect]
     Active Substance: BELIMUMAB
     Indication: Systemic lupus erythematosus
     Dosage: UNK
     Dates: start: 201902
  2. BENLYSTA [Suspect]
     Active Substance: BELIMUMAB
     Indication: Systemic lupus erythematosus
     Dosage: UNK
     Dates: start: 201902

REACTIONS (11)
  - Coeliac artery stenosis [Not Recovered/Not Resolved]
  - Systemic lupus erythematosus [Unknown]
  - Injection site pain [Unknown]
  - Vascular operation [Not Recovered/Not Resolved]
  - COVID-19 [Recovered/Resolved]
  - Endoscopy [Recovered/Resolved]
  - Headache [Recovered/Resolved]
  - Abdominal discomfort [Not Recovered/Not Resolved]
  - Arthralgia [Recovered/Resolved]
  - Stomatitis [Recovered/Resolved]
  - Gastric operation [Unknown]

NARRATIVE: CASE EVENT DATE: 20201227
